FAERS Safety Report 8246224-7 (Version None)
Quarter: 2012Q1

REPORT INFORMATION
  Report Type: 
  Country: None (occurrence: None)
  Receive Date: 20120330
  Receipt Date: 20100318
  Transmission Date: 20120608
  Serious: No
  Sender: FDA-Public Use
  Company Number: US-MYLANLABS-2010S1002598

PATIENT
  Age: 66 Year
  Sex: Female
  Weight: 115.21 kg

DRUGS (1)
  1. ALBUTEROL SULATE [Suspect]
     Indication: CHRONIC OBSTRUCTIVE PULMONARY DISEASE
     Route: 055

REACTIONS (2)
  - THROAT IRRITATION [None]
  - BRONCHIAL IRRITATION [None]
